FAERS Safety Report 11191406 (Version 4)
Quarter: 2015Q3

REPORT INFORMATION
  Report Type: Report from Study
  Country: DE (occurrence: DE)
  Receive Date: 20150616
  Receipt Date: 20150723
  Transmission Date: 20151125
  Serious: Yes (Hospitalization)
  Sender: FDA-Public Use
  Company Number: PHHY2015DE070522

PATIENT
  Age: 59 Year
  Sex: Female
  Weight: 44 kg

DRUGS (7)
  1. AFINITOR [Suspect]
     Active Substance: EVEROLIMUS
     Dosage: 10 MG, ONCE DAILY (QD)
     Route: 048
     Dates: start: 20141008, end: 20141026
  2. AFINITOR [Suspect]
     Active Substance: EVEROLIMUS
     Dosage: 10 MG, ONCE DAILY (QD)
     Route: 048
     Dates: start: 20141030, end: 20150107
  3. AFINITOR [Suspect]
     Active Substance: EVEROLIMUS
     Dosage: 10 MG, ONCE DAILY (QD)
     Route: 048
     Dates: start: 20150130, end: 20150531
  4. AFINITOR [Suspect]
     Active Substance: EVEROLIMUS
     Indication: BREAST CANCER METASTATIC
     Dosage: 2.5 MG, ONCE DAILY (QD)
     Route: 048
     Dates: start: 20140918, end: 20140927
  5. AFINITOR [Suspect]
     Active Substance: EVEROLIMUS
     Dosage: 5 MG, ONCE DAILY (QD)
     Route: 048
     Dates: start: 20150129, end: 20150129
  6. AFINITOR [Suspect]
     Active Substance: EVEROLIMUS
     Dosage: 5 MG, ONCE DAILY (QD)
     Route: 048
     Dates: start: 20140928, end: 20141007
  7. EXEMESTANE. [Suspect]
     Active Substance: EXEMESTANE
     Indication: BREAST CANCER METASTATIC
     Dosage: 25 MG, ONCE DAILY (QD)
     Route: 048
     Dates: start: 20140918, end: 20150531

REACTIONS (2)
  - Septic shock [Recovering/Resolving]
  - Ileus [Recovering/Resolving]

NARRATIVE: CASE EVENT DATE: 20150601
